FAERS Safety Report 5666041-1 (Version None)
Quarter: 2008Q1

REPORT INFORMATION
  Report Type: 
  Country: None (occurrence: None)
  Receive Date: 20080314
  Receipt Date: 20071211
  Transmission Date: 20080703
  Serious: No
  Sender: FDA-Public Use
  Company Number: US-ABBOTT-07P-163-0429880-00

PATIENT
  Age: 31 Year
  Sex: Female

DRUGS (1)
  1. HUMIRA [Suspect]
     Indication: DRUG USE FOR UNKNOWN INDICATION
     Dates: start: 20071007

REACTIONS (4)
  - ACCIDENTAL EXPOSURE [None]
  - FEELING HOT [None]
  - INJECTION SITE PAIN [None]
  - OEDEMA PERIPHERAL [None]
